FAERS Safety Report 16714482 (Version 1)
Quarter: 2019Q3

REPORT INFORMATION
  Report Type: Spontaneous
  Country: US (occurrence: US)
  Receive Date: 20190819
  Receipt Date: 20190819
  Transmission Date: 20191004
  Serious: Yes (Other)
  Sender: FDA-Public Use
  Company Number: US-GRANULES INDIA LIMITED-2073305

PATIENT
  Age: 69 Year
  Sex: Male
  Weight: 102.27 kg

DRUGS (2)
  1. THEOPHYLLINE [Concomitant]
     Active Substance: THEOPHYLLINE ANHYDROUS
     Route: 048
     Dates: start: 1960
  2. METFORMIN HYDROCHLORIDE. [Suspect]
     Active Substance: METFORMIN HYDROCHLORIDE
     Indication: DIABETES MELLITUS
     Route: 065

REACTIONS (5)
  - Diarrhoea haemorrhagic [Recovered/Resolved]
  - Drug hypersensitivity [Recovered/Resolved]
  - Blister [Recovered/Resolved]
  - Malaise [Recovered/Resolved]
  - Oral mucosal blistering [Recovered/Resolved]
